FAERS Safety Report 20953518 (Version 1)
Quarter: 2022Q2

REPORT INFORMATION
  Report Type: Spontaneous
  Country: DE (occurrence: DE)
  Receive Date: 20220613
  Receipt Date: 20220613
  Transmission Date: 20220721
  Serious: Yes (Hospitalization)
  Sender: FDA-Public Use
  Company Number: DE-LUPIN PHARMACEUTICALS INC.-2022-08526

PATIENT
  Age: 41 Year
  Sex: Male
  Weight: 90 kg

DRUGS (11)
  1. ALBUTEROL SULFATE [Suspect]
     Active Substance: ALBUTEROL SULFATE
     Indication: Asthma
     Dosage: UNK
  2. IPRATROPIUM BROMIDE [Suspect]
     Active Substance: IPRATROPIUM BROMIDE
     Indication: Asthma
     Dosage: UNK
  3. PREDNISOLONE [Suspect]
     Active Substance: PREDNISOLONE
     Indication: Asthma
     Dosage: RECEIVED HIGH-DOSE
     Route: 042
  4. REPROTEROL [Suspect]
     Active Substance: REPROTEROL
     Indication: Asthma
     Dosage: UNK
     Route: 042
  5. MAGNESIUM [Suspect]
     Active Substance: MAGNESIUM
     Indication: Asthma
     Dosage: UNK
     Route: 042
  6. MAGNESIUM [Suspect]
     Active Substance: MAGNESIUM
     Dosage: RECEIVED SEVERAL IV BOLUSES
     Route: 042
  7. KETAMINE [Suspect]
     Active Substance: KETAMINE
     Indication: Asthma
     Dosage: 2.2 MILLIGRAM PER KILOGRAM PER HOUR
     Route: 042
  8. KETAMINE [Suspect]
     Active Substance: KETAMINE
     Dosage: RECEIVED ADDITIONAL 2.2MG/KG BW/H
     Route: 042
  9. TERBUTALINE [Suspect]
     Active Substance: TERBUTALINE
     Indication: Asthma
     Dosage: UNK
     Route: 058
  10. METHYLPREDNISOLONE [Suspect]
     Active Substance: METHYLPREDNISOLONE
     Indication: Asthma
     Dosage: RECEIVED ON 3 CONSECUTIVE DAYS
     Route: 042
  11. ISOFLURANE [Suspect]
     Active Substance: ISOFLURANE
     Indication: Asthma
     Dosage: INHALED APPROXIMATELY 0.8 VOL% ENDEXP

REACTIONS (1)
  - Drug ineffective [Unknown]
